FAERS Safety Report 9172131 (Version 1)
Quarter: 2013Q1

REPORT INFORMATION
  Report Type: Spontaneous
  Country: IT (occurrence: IT)
  Receive Date: 20130319
  Receipt Date: 20130319
  Transmission Date: 20140127
  Serious: Yes (Other)
  Sender: FDA-Public Use
  Company Number: IT-GALDERMA-IT13000838

PATIENT
  Sex: 0

DRUGS (1)
  1. METVIXIA [Suspect]
     Indication: ACTINIC KERATOSIS
     Dosage: 16%
     Route: 061

REACTIONS (3)
  - Hypertensive crisis [Unknown]
  - Pain of skin [Unknown]
  - Procedural hypertension [None]
